FAERS Safety Report 4394835-1 (Version None)
Quarter: 2004Q3

REPORT INFORMATION
  Report Type: 
  Country: None (occurrence: None)
  Receive Date: 20040707
  Receipt Date: 20040623
  Transmission Date: 20050211
  Serious: Yes (Hospitalization)
  Sender: FDA-Public Use
  Company Number: 2004PK01023

PATIENT
  Age: 69 Year
  Sex: Female
  Weight: 72.5 kg

DRUGS (1)
  1. ARIMIDEX [Suspect]
     Indication: BREAST CANCER
     Dosage: 1 DF DAILY PO
     Route: 048
     Dates: start: 20030702

REACTIONS (1)
  - THROMBOSIS [None]
